FAERS Safety Report 9124488 (Version 1)
Quarter: 2013Q1

REPORT INFORMATION
  Report Type: Spontaneous
  Country: BE (occurrence: BE)
  Receive Date: 20130227
  Receipt Date: 20130227
  Transmission Date: 20140127
  Serious: Yes (Other)
  Sender: FDA-Public Use
  Company Number: BE-ROCHE-1195555

PATIENT
  Age: 65 Year
  Sex: Female

DRUGS (3)
  1. AVASTIN [Suspect]
     Indication: PRODUCT USED FOR UNKNOWN INDICATION
     Route: 065
  2. LUCENTIS [Suspect]
     Indication: MACULOPATHY
     Route: 050
     Dates: start: 201212
  3. LUCENTIS [Suspect]
     Route: 050
     Dates: start: 201301

REACTIONS (2)
  - Cataract [Not Recovered/Not Resolved]
  - Pain in extremity [Unknown]
